FAERS Safety Report 19423983 (Version 1)
Quarter: 2021Q2

REPORT INFORMATION
  Report Type: Report from Study
  Country: US (occurrence: US)
  Receive Date: 20210616
  Receipt Date: 20210616
  Transmission Date: 20210717
  Serious: Yes (Death, Other)
  Sender: FDA-Public Use
  Company Number: US-MYLANLABS-2021M1034870

PATIENT
  Age: 1 Year

DRUGS (3)
  1. BUSULFAN. [Suspect]
     Active Substance: BUSULFAN
     Indication: BONE MARROW CONDITIONING REGIMEN
     Dosage: UNK UNK, BID
     Route: 065
  2. FLUDARABINE [Suspect]
     Active Substance: FLUDARABINE PHOSPHATE
     Indication: BONE MARROW CONDITIONING REGIMEN
     Dosage: 180 MILLIGRAM/SQ. METER OVER 6 DAYS (ON DAYS ?8 TO ?3)
     Route: 065
  3. ALEMTUZUMAB [Suspect]
     Active Substance: ALEMTUZUMAB
     Indication: DRUG THERAPY
     Dosage: 0.5 MILLIGRAM/KILOGRAM OVER 3 DAYS (ON DAYS ?8 TO ?6)
     Route: 065

REACTIONS (2)
  - Thrombotic microangiopathy [Unknown]
  - Pulmonary alveolar haemorrhage [Fatal]
